FAERS Safety Report 15546366 (Version 3)
Quarter: 2019Q1

REPORT INFORMATION
  Report Type: Spontaneous
  Country: AE (occurrence: AE)
  Receive Date: 20181024
  Receipt Date: 20190306
  Transmission Date: 20190417
  Serious: Yes (Other)
  Sender: FDA-Public Use
  Company Number: AE-AMGEN-ARESP2018147633

PATIENT
  Age: 42 Year
  Sex: Male

DRUGS (1)
  1. ENBREL [Suspect]
     Active Substance: ETANERCEPT
     Indication: AXIAL SPONDYLOARTHRITIS
     Dosage: 50 MG, QWK
     Route: 065
     Dates: start: 201603, end: 201808

REACTIONS (3)
  - Scleroderma-like reaction [Unknown]
  - Alopecia [Unknown]
  - Skin lesion [Unknown]
